FAERS Safety Report 6482478 (Version 2)
Quarter: 2013Q1

REPORT INFORMATION
  Report Type: Spontaneous
  Country: US (occurrence: US)
  Receive Date: 20071206
  Receipt Date: 20130311
  Transmission Date: 20140127
  Serious: Yes (Hospitalization, Other)
  Sender: FDA-Public Use
  Company Number: US-AMGEN-KDL227880

PATIENT
  Age: 80 Year
  Sex: Female

DRUGS (10)
  1. ENBREL [Suspect]
     Indication: RHEUMATOID ARTHRITIS
     Dosage: 50 MG, 2 TIMES/WK
     Route: 058
     Dates: start: 20070517
  2. ENBREL [Suspect]
     Indication: PSORIASIS
  3. ATORVASTATIN CALCIUM [Concomitant]
     Dosage: 10 MG, BID
  4. LEVOXYL [Concomitant]
     Dosage: UNK
  5. MECLIZINE                          /00072801/ [Concomitant]
     Dosage: UNK
  6. LISINOPRIL/HYDROCHLOROTHIAZIDE [Concomitant]
  7. PROPRANOLOL [Concomitant]
     Dosage: 40 MG, BID
  8. LEVOTHRYROXINE SODIUM [Concomitant]
     Dosage: 100 MG, QD
  9. GLIPIZIDE [Concomitant]
     Dosage: 2.5 MG, QD
  10. ASPIRIN [Concomitant]

REACTIONS (4)
  - Cerebrovascular accident [Recovering/Resolving]
  - Fall [Unknown]
  - Injection site erythema [Unknown]
  - Injection site bruising [Unknown]
